FAERS Safety Report 5971386-1 (Version None)
Quarter: 2008Q4

REPORT INFORMATION
  Report Type: 
  Country: None (occurrence: None)
  Receive Date: 20081130
  Receipt Date: 20081121
  Transmission Date: 20090506
  Serious: Yes (Other)
  Sender: FDA-Public Use
  Company Number: GB-PFIZER INC-2008099994

PATIENT
  Age: 55 Year
  Sex: Male

DRUGS (4)
  1. ATORVASTATIN [Suspect]
     Indication: HYPERCHOLESTEROLAEMIA
  2. INSULIN [Concomitant]
  3. ACETYLSALICYLIC ACID SRT [Concomitant]
  4. NICORANDIL [Concomitant]

REACTIONS (6)
  - AUTOIMMUNE HEPATITIS [None]
  - CHOLESTASIS [None]
  - FATIGUE [None]
  - HEPATIC FIBROSIS [None]
  - JAUNDICE [None]
  - LIVER INJURY [None]
